FAERS Safety Report 8425166-8 (Version None)
Quarter: 2012Q2

REPORT INFORMATION
  Report Type: 
  Country: None (occurrence: None)
  Receive Date: 20120531
  Receipt Date: 20120525
  Transmission Date: 20120825
  Serious: Yes (Death, Hospitalization)
  Sender: FDA-Public Use
  Company Number: 2012SP026643

PATIENT
  Age: 59 Year
  Sex: Female

DRUGS (6)
  1. PEG-INTRON [Suspect]
     Indication: HEPATITIS C
     Dosage: 100 MCG;QW;SC
     Route: 058
     Dates: start: 20120328, end: 20120516
  2. SPIRONOLACTONE [Concomitant]
  3. LEVOTHYROXINE SODIUM [Concomitant]
  4. RIBAVIRIN [Suspect]
     Indication: HEPATITIS C
     Dosage: 200 MG;TID;PO
     Route: 048
     Dates: start: 20120328, end: 20120516
  5. VICTRELIS [Suspect]
     Indication: HEPATITIS C
     Dosage: 800 MG;TID
     Dates: start: 20120502, end: 20120516
  6. PROPRANOLOL [Concomitant]

REACTIONS (12)
  - HAEMATURIA [None]
  - WHITE BLOOD CELL COUNT DECREASED [None]
  - OEDEMA [None]
  - DYSPNOEA [None]
  - OESOPHAGEAL VARICES HAEMORRHAGE [None]
  - PLATELET COUNT DECREASED [None]
  - ACTIVATED PARTIAL THROMBOPLASTIN TIME SHORTENED [None]
  - JAUNDICE [None]
  - TRANSFUSION REACTION [None]
  - BRADYCARDIA [None]
  - ANAEMIA [None]
  - ACUTE RESPIRATORY DISTRESS SYNDROME [None]
